FAERS Safety Report 7508940-1 (Version None)
Quarter: 2011Q2

REPORT INFORMATION
  Report Type: 
  Country: None (occurrence: None)
  Receive Date: 20110519
  Receipt Date: 20110510
  Transmission Date: 20111010
  Serious: Yes (Hospitalization)
  Sender: FDA-Public Use
  Company Number: WAES 1105USA02023

PATIENT
  Age: 66 Year
  Sex: Male

DRUGS (10)
  1. DOCETAXEL [Concomitant]
  2. LIDOCAINE HYDROCHLORIDE [Concomitant]
  3. SPRYCEL [Concomitant]
  4. ISTIN [Concomitant]
  5. PREDNISOLONE [Suspect]
     Indication: PROSTATE CANCER
     Dosage: 10 MG/DAILY, PO
     Route: 048
     Dates: start: 20110117
  6. DECADRON [Suspect]
     Indication: PROSTATE CANCER
     Dosage: 8 MG/BID, PO
     Route: 048
     Dates: start: 20110116, end: 20110118
  7. ATACAND [Concomitant]
  8. LIPITOR [Concomitant]
  9. MIDAZOLAM HCL [Concomitant]
  10. PLACEBO [Concomitant]

REACTIONS (5)
  - CHEST PAIN [None]
  - GASTRIC ULCER [None]
  - GASTRITIS [None]
  - REFLUX GASTRITIS [None]
  - ABDOMINAL PAIN UPPER [None]
